FAERS Safety Report 11379702 (Version 1)
Quarter: 2015Q3

REPORT INFORMATION
  Report Type: Spontaneous
  Country: US (occurrence: None)
  Receive Date: 20150813
  Receipt Date: 20150813
  Transmission Date: 20151125
  Serious: Yes (Hospitalization)
  Sender: FDA-Public Use
  Company Number: None

PATIENT
  Age: 82 Year
  Sex: Male
  Weight: 77.11 kg

DRUGS (11)
  1. DEXILANT [Concomitant]
     Active Substance: DEXLANSOPRAZOLE
  2. C-PAP DEVICE [Concomitant]
  3. NORVASC [Concomitant]
     Active Substance: AMLODIPINE BESYLATE
  4. RAPAFLO [Suspect]
     Active Substance: SILODOSIN
     Indication: URINARY TRACT DISORDER
     Dates: end: 20150531
  5. LONG LASTING NITRO PILL [Concomitant]
  6. JANUMET RX [Concomitant]
  7. MAGNESIUM [Concomitant]
     Active Substance: MAGNESIUM
  8. ICD DEVISE [Concomitant]
  9. CALCIUM [Concomitant]
     Active Substance: CALCIUM
  10. ELIQUIS [Concomitant]
     Active Substance: APIXABAN
  11. FLORSTOR [Concomitant]

REACTIONS (2)
  - Nausea [None]
  - Contraindication to medical treatment [None]

NARRATIVE: CASE EVENT DATE: 20150731
